FAERS Safety Report 10746772 (Version 1)
Quarter: 2015Q1

REPORT INFORMATION
  Report Type: Spontaneous
  Country: FR (occurrence: FR)
  Receive Date: 20150129
  Receipt Date: 20150129
  Transmission Date: 20150721
  Serious: Yes (Hospitalization)
  Sender: FDA-Public Use
  Company Number: FR-ROCHE-1525596

PATIENT
  Age: 95 Year
  Sex: Female

DRUGS (19)
  1. ROCEPHINE [Suspect]
     Active Substance: CEFTRIAXONE SODIUM
     Indication: LUNG DISORDER
     Dosage: FROM 26-27 DEC/2014
     Route: 065
     Dates: start: 20141226, end: 20141227
  2. KARDEGIC [Concomitant]
     Active Substance: ASPIRIN LYSINE
  3. FORLAX [Concomitant]
     Active Substance: POLYETHYLENE GLYCOL 4000
  4. ALPRAZOLAM. [Concomitant]
     Active Substance: ALPRAZOLAM
  5. EUPANTOL [Concomitant]
     Active Substance: PANTOPRAZOLE SODIUM
  6. LEVOTHYROX [Concomitant]
     Active Substance: LEVOTHYROXINE
  7. AUGMENTIN [Concomitant]
     Active Substance: AMOXICILLIN\CLAVULANATE POTASSIUM
     Dosage: FROM 28-DEC AND 05-JAN
     Route: 065
     Dates: start: 20141228, end: 20150105
  8. ROVAMYCINE [Suspect]
     Active Substance: SPIRAMYCIN
     Indication: PRODUCT USED FOR UNKNOWN INDICATION
     Route: 042
     Dates: start: 20150105, end: 20150112
  9. COUMADINE [Concomitant]
     Active Substance: WARFARIN SODIUM
     Route: 048
     Dates: start: 20150107
  10. TAVANIC [Concomitant]
     Active Substance: LEVOFLOXACIN
     Dosage: 28-DEC AND 05-JAN
     Route: 065
  11. LASILIX [Concomitant]
     Active Substance: FUROSEMIDE
  12. ROVAMYCINE [Suspect]
     Active Substance: SPIRAMYCIN
     Route: 065
     Dates: start: 20141226, end: 20141227
  13. CALCIPARINE [Concomitant]
     Active Substance: HEPARIN CALCIUM
     Route: 058
     Dates: start: 20150107, end: 20150111
  14. ROCEPHINE [Suspect]
     Active Substance: CEFTRIAXONE SODIUM
     Route: 042
     Dates: start: 20150105, end: 20150112
  15. COUMADINE [Concomitant]
     Active Substance: WARFARIN SODIUM
     Route: 065
     Dates: start: 20150111
  16. COUMADINE [Concomitant]
     Active Substance: WARFARIN SODIUM
     Route: 065
     Dates: start: 20150113
  17. DOLIPRANE [Concomitant]
     Active Substance: ACETAMINOPHEN
  18. FLAGYL [Suspect]
     Active Substance: METRONIDAZOLE\METRONIDAZOLE HYDROCHLORIDE
     Indication: PRODUCT USED FOR UNKNOWN INDICATION
     Route: 048
     Dates: start: 20150105, end: 20150112
  19. MIANSERIN [Concomitant]
     Active Substance: MIANSERIN

REACTIONS (1)
  - Acute generalised exanthematous pustulosis [Recovering/Resolving]

NARRATIVE: CASE EVENT DATE: 20150110
